FAERS Safety Report 8379748-2 (Version None)
Quarter: 2012Q2

REPORT INFORMATION
  Report Type: 
  Country: None (occurrence: None)
  Receive Date: 20120523
  Receipt Date: 20120522
  Transmission Date: 20120825
  Serious: Yes (Hospitalization)
  Sender: FDA-Public Use
  Company Number: PHEH2012US010589

PATIENT
  Sex: Female
  Weight: 29 kg

DRUGS (4)
  1. MULTI-VITAMINS [Concomitant]
  2. TOBI [Suspect]
     Dosage: 300 MG, VIA NEBULISER IN A CYCLE OF 28 DAYS ON AND 28 DAYS OFF
  3. PULMOZYME [Concomitant]
  4. ALBUTEROL [Concomitant]

REACTIONS (2)
  - CONSTIPATION [None]
  - INTESTINAL OBSTRUCTION [None]
